FAERS Safety Report 7937449-6 (Version None)
Quarter: 2011Q4

REPORT INFORMATION
  Report Type: 
  Country: None (occurrence: None)
  Receive Date: 20111123
  Receipt Date: 20111122
  Transmission Date: 20120403
  Serious: No
  Sender: FDA-Public Use
  Company Number: US-B.I. PHARMACEUTICALS,INC./RIDGEFIELD-2011-BP-26737BP

PATIENT
  Sex: Male

DRUGS (8)
  1. MAXZIDE [Concomitant]
     Indication: OEDEMA PERIPHERAL
  2. SPIRIVA [Suspect]
     Indication: CHRONIC OBSTRUCTIVE PULMONARY DISEASE
     Dosage: 18 MCG
     Route: 048
     Dates: start: 20111122, end: 20111122
  3. SPIRIVA [Suspect]
     Dosage: 18 MCG
     Route: 055
  4. PREVOVOL [Concomitant]
     Indication: BLOOD CHOLESTEROL INCREASED
  5. ADVAIR DISKUS 100/50 [Concomitant]
     Indication: ASTHMA
  6. PROAIR HFA [Concomitant]
     Indication: ASTHMA
  7. VASOTEC [Concomitant]
     Indication: HYPERTENSION
  8. ASPIRIN [Concomitant]
     Indication: ROUTINE HEALTH MAINTENANCE

REACTIONS (1)
  - INCORRECT ROUTE OF DRUG ADMINISTRATION [None]
